FAERS Safety Report 7884233-8 (Version None)
Quarter: 2011Q4

REPORT INFORMATION
  Report Type: 
  Country: None (occurrence: None)
  Receive Date: 20111102
  Receipt Date: 20111027
  Transmission Date: 20120403
  Serious: Yes (Hospitalization, Other)
  Sender: FDA-Public Use
  Company Number: FR-PFIZER INC-2011233246

PATIENT
  Age: 51 Year
  Sex: Female
  Weight: 80 kg

DRUGS (1)
  1. MEDROL [Suspect]
     Indication: BACK PAIN
     Dosage: 3 DF, PER DAY
     Dates: start: 19960509, end: 19960509

REACTIONS (2)
  - DUODENAL ULCER PERFORATION [None]
  - PNEUMOPERITONEUM [None]
